FAERS Safety Report 10986379 (Version 2)
Quarter: 2015Q2

REPORT INFORMATION
  Report Type: Spontaneous
  Country: US (occurrence: US)
  Receive Date: 20150404
  Receipt Date: 20150525
  Transmission Date: 20150821
  Serious: No
  Sender: FDA-Public Use
  Company Number: US-JNJFOC-20130906730

PATIENT
  Age: 89 Year
  Sex: Female
  Weight: 55.79 kg

DRUGS (5)
  1. IMODIUM MULTI-SYMPTOM RELIEF [Suspect]
     Active Substance: DIMETHICONE\LOPERAMIDE HYDROCHLORIDE
     Indication: DIARRHOEA
     Dosage: TOOK ONCE EVERY 5 TO 10 DAYS
     Route: 048
     Dates: start: 19980901
  2. THYROID THERAPY [Concomitant]
     Active Substance: UNSPECIFIED INGREDIENT
     Indication: THYROID DISORDER
     Route: 065
  3. UNKNOWN MEDICATION FOR ATRIAL FIBRILLATION [Concomitant]
     Indication: ATRIAL FIBRILLATION
     Route: 065
  4. IMODIUM MULTI-SYMPTOM RELIEF [Suspect]
     Active Substance: DIMETHICONE\LOPERAMIDE HYDROCHLORIDE
     Route: 048
  5. HIGH BLOOD PRESSURE MEDICATION NOS [Concomitant]
     Active Substance: UNSPECIFIED INGREDIENT
     Indication: HYPERTENSION
     Route: 065

REACTIONS (3)
  - Foreign body [Recovered/Resolved]
  - Product packaging issue [Unknown]
  - Product size issue [Unknown]

NARRATIVE: CASE EVENT DATE: 20130911
